FAERS Safety Report 9458465 (Version 2)
Quarter: 2013Q3

REPORT INFORMATION
  Report Type: Spontaneous
  Country: JP (occurrence: JP)
  Receive Date: 20130814
  Receipt Date: 20130817
  Transmission Date: 20140515
  Serious: No
  Sender: FDA-Public Use
  Company Number: JP-UCBSA-095002

PATIENT
  Age: 67 Year
  Sex: Male

DRUGS (2)
  1. EKEPPRA [Suspect]
     Route: 048
     Dates: start: 2013, end: 20130729
  2. DEPAKENE [Concomitant]

REACTIONS (2)
  - Platelet count decreased [Unknown]
  - Haemoglobin decreased [Unknown]
